FAERS Safety Report 10782631 (Version 1)
Quarter: 2015Q1

REPORT INFORMATION
  Report Type: Spontaneous
  Country: US (occurrence: US)
  Receive Date: 20150210
  Receipt Date: 20150210
  Transmission Date: 20150721
  Serious: No
  Sender: FDA-Public Use
  Company Number: US-GLAXOSMITHKLINE-A1070631A

PATIENT

DRUGS (3)
  1. PHENOBARBITAL. [Concomitant]
     Active Substance: PHENOBARBITAL
  2. ACYCLOVIR TABLET [Suspect]
     Active Substance: ACYCLOVIR
     Indication: ORAL HERPES
     Route: 048
     Dates: start: 2001, end: 2001
  3. VALTREX [Suspect]
     Active Substance: VALACYCLOVIR HYDROCHLORIDE
     Indication: ORAL HERPES
     Route: 048
     Dates: start: 2001

REACTIONS (7)
  - Drug ineffective [Unknown]
  - Cataract [Not Recovered/Not Resolved]
  - Nausea [Recovered/Resolved]
  - Abdominal pain upper [Recovered/Resolved]
  - Diarrhoea [Recovered/Resolved]
  - Hypersensitivity [Recovered/Resolved]
  - Herpes simplex [Recovered/Resolved]

NARRATIVE: CASE EVENT DATE: 2001
